FAERS Safety Report 6510123-9 (Version None)
Quarter: 2009Q4

REPORT INFORMATION
  Report Type: 
  Country: None (occurrence: None)
  Receive Date: 20091222
  Receipt Date: 20091208
  Transmission Date: 20100525
  Serious: Yes (Other)
  Sender: FDA-Public Use
  Company Number: B0484900A

PATIENT
  Age: 7 Year
  Sex: Male

DRUGS (11)
  1. CEFTAZIDIME [Suspect]
     Indication: CYSTIC FIBROSIS
     Route: 042
     Dates: start: 20020430, end: 20020513
  2. GENTAMICIN [Suspect]
     Indication: CYSTIC FIBROSIS
     Dosage: 3.92MGK THREE TIMES PER DAY
     Route: 065
     Dates: start: 20020430, end: 20020513
  3. TOBRAMYCIN [Suspect]
     Indication: ANTIBIOTIC PROPHYLAXIS
     Route: 065
  4. FLONASE [Concomitant]
     Route: 045
  5. POTASSIUM [Concomitant]
  6. CREON [Concomitant]
     Indication: CYSTIC FIBROSIS
     Route: 048
  7. ABDEC [Concomitant]
     Indication: NUTRITIONAL SUPPORT
  8. COLOMYCIN [Concomitant]
     Indication: CYSTIC FIBROSIS
  9. CIPROFLOXACIN [Concomitant]
  10. SODIUM [Concomitant]
  11. FLOXACILLIN SODIUM [Concomitant]
     Indication: CYSTIC FIBROSIS
     Route: 048

REACTIONS (4)
  - ANURIA [None]
  - BLOOD CREATININE INCREASED [None]
  - RENAL FAILURE ACUTE [None]
  - RENAL TUBULAR NECROSIS [None]
